FAERS Safety Report 9760302 (Version 3)
Quarter: 2014Q1

REPORT INFORMATION
  Report Type: Report from Study
  Country: US (occurrence: US)
  Receive Date: 20131216
  Receipt Date: 20140211
  Transmission Date: 20141002
  Serious: Yes (Death)
  Sender: FDA-Public Use
  Company Number: US-VIIV HEALTHCARE LIMITED-A1053577A

PATIENT
  Age: 0 Year
  Sex: Female
  Weight: 2.1 kg

DRUGS (4)
  1. RETROVIR [Suspect]
     Indication: ANTIRETROVIRAL THERAPY
     Dosage: 1MGKH UNKNOWN
     Route: 064
     Dates: start: 20130806, end: 20130806
  2. NORVIR [Suspect]
     Indication: ANTIRETROVIRAL THERAPY
     Dosage: 1TAB PER DAY
     Route: 064
     Dates: start: 20130312
  3. PREZISTA [Suspect]
     Indication: ANTIRETROVIRAL THERAPY
     Dosage: 2TAB PER DAY
     Route: 064
     Dates: start: 20130312
  4. TRUVADA [Suspect]
     Indication: ANTIRETROVIRAL THERAPY
     Dosage: 1U PER DAY
     Route: 064
     Dates: start: 20130312

REACTIONS (5)
  - Death neonatal [Fatal]
  - Subgaleal haematoma [Unknown]
  - Disseminated intravascular coagulation [Unknown]
  - Premature baby [Unknown]
  - Foetal exposure during pregnancy [Unknown]
